FAERS Safety Report 7987995-4 (Version None)
Quarter: 2011Q4

REPORT INFORMATION
  Report Type: 
  Country: None (occurrence: None)
  Receive Date: 20111216
  Receipt Date: 20110623
  Transmission Date: 20120403
  Serious: No
  Sender: FDA-Public Use
  Company Number: US-BRISTOL-MYERS SQUIBB COMPANY-15777386

PATIENT
  Age: 38 Year
  Sex: Female
  Weight: 75 kg

DRUGS (9)
  1. ABILIFY [Suspect]
     Indication: POST-TRAUMATIC STRESS DISORDER
     Dosage: AT BED TIME DECREASED TO 5MG
     Dates: start: 20060101
  2. IBUPROFEN [Concomitant]
  3. TOPAMAX [Concomitant]
     Dosage: AT NIGHT
  4. AMBIEN [Concomitant]
     Dosage: 1 DOSAGE FORM=1/2 TABLET AMBIEN 10 MG  5MG AT BED TIME
  5. ROPINIROLE [Concomitant]
     Dosage: AT NIGHT
  6. ABILIFY [Suspect]
     Indication: BIPOLAR I DISORDER
     Dosage: AT BED TIME DECREASED TO 5MG
     Dates: start: 20060101
  7. ABILIFY [Suspect]
     Indication: BORDERLINE PERSONALITY DISORDER
     Dosage: AT BED TIME DECREASED TO 5MG
     Dates: start: 20060101
  8. ABILIFY [Suspect]
     Indication: DRUG DEPENDENCE
     Dosage: AT BED TIME DECREASED TO 5MG
     Dates: start: 20060101
  9. LIPITOR [Concomitant]
     Dosage: AT NIGHT

REACTIONS (1)
  - TARDIVE DYSKINESIA [None]
